APPROVED DRUG PRODUCT: LORATADINE
Active Ingredient: LORATADINE
Strength: 1MG/ML
Dosage Form/Route: SUSPENSION;ORAL
Application: N021734 | Product #001
Applicant: SUN PHARMA CANADA INC
Approved: Oct 4, 2005 | RLD: Yes | RS: No | Type: DISCN